FAERS Safety Report 6245542-1 (Version None)
Quarter: 2009Q2

REPORT INFORMATION
  Report Type: 
  Country: None (occurrence: None)
  Receive Date: 20090625
  Receipt Date: 20090623
  Transmission Date: 20091009
  Serious: Yes (Hospitalization, Congenital Anomaly, Other)
  Sender: FDA-Public Use
  Company Number: US-RB-001498-08

PATIENT
  Sex: Male

DRUGS (2)
  1. SUBUTEX [Suspect]
     Indication: DRUG DEPENDENCE
     Route: 064
     Dates: start: 20080311, end: 20080313
  2. SUBUTEX [Suspect]
     Route: 064
     Dates: start: 20080314, end: 20080427

REACTIONS (4)
  - CARDIAC MURMUR [None]
  - EXUDATIVE RETINOPATHY [None]
  - IRRITABILITY [None]
  - PREMATURE BABY [None]
